FAERS Safety Report 5485911-0 (Version None)
Quarter: 2007Q4

REPORT INFORMATION
  Report Type: 
  Country: None (occurrence: None)
  Receive Date: 20071015
  Receipt Date: 20070927
  Transmission Date: 20080405
  Serious: No
  Sender: FDA-Public Use
  Company Number: US-BOEHRINGER INGELHEIM PHARMACEUTICALS, INC.-2007-BP-20728BP

PATIENT
  Age: 67 Year
  Sex: Female

DRUGS (19)
  1. SPIRIVA [Suspect]
     Indication: CHRONIC OBSTRUCTIVE PULMONARY DISEASE
     Route: 055
     Dates: start: 20040616
  2. REQUIP [Suspect]
  3. NEXIUM [Suspect]
  4. CYMBALTA [Suspect]
  5. ACEBUTOLOL [Suspect]
  6. WELCHOL [Suspect]
  7. METOLAZONE [Suspect]
  8. PLAVIX [Suspect]
  9. ZETIA [Suspect]
  10. RANEXA [Suspect]
  11. NASONEX [Suspect]
  12. ADVAIR DISKUS 100/50 [Suspect]
  13. LANTUS [Suspect]
  14. CATAPRES-TTS-1 [Suspect]
     Indication: HYPERTENSION
     Route: 061
     Dates: start: 20020801
  15. COZAAR [Suspect]
  16. HUMULIN 70/30 [Suspect]
  17. CLARINEX [Suspect]
  18. NITROGLYCERIN [Suspect]
  19. KLOR-CON [Suspect]

REACTIONS (2)
  - MUSCULAR WEAKNESS [None]
  - URINE ARSENIC INCREASED [None]
